FAERS Safety Report 9487587 (Version 2)
Quarter: 2013Q3

REPORT INFORMATION
  Report Type: Spontaneous
  Country: US (occurrence: US)
  Receive Date: 20130725
  Receipt Date: 20130725
  Transmission Date: 20140515
  Serious: Yes (Hospitalization)
  Sender: FDA-Public Use
  Company Number: US-GLAXOSMITHKLINE-A0817889A

PATIENT
  Age: 38 Year
  Sex: Male

DRUGS (16)
  1. AVANDIA [Suspect]
     Indication: DIABETES MELLITUS
     Dosage: 4MG TWICE PER DAY
     Route: 048
     Dates: start: 1998, end: 2003
  2. METFORMIN [Concomitant]
  3. GLYBURIDE [Concomitant]
  4. ATENOLOL [Concomitant]
  5. AMMONIUM LACTATE [Concomitant]
  6. BUPROPION HCL [Concomitant]
  7. CARBAMIDE PEROXIDE [Concomitant]
  8. FELODIPINE [Concomitant]
  9. FEXOFENADINE HCL [Concomitant]
  10. GABAPENTIN [Concomitant]
  11. GUAIFENESIN [Concomitant]
  12. HYDROCODONE + ACETAMINOPHEN [Concomitant]
  13. IRBESARTAN [Concomitant]
  14. LORAZEPAM [Concomitant]
  15. RANITIDINE HCL [Concomitant]
  16. TERBINAFINE HCL [Concomitant]

REACTIONS (1)
  - Cardiac failure congestive [Not Recovered/Not Resolved]
